FAERS Safety Report 12285317 (Version 1)
Quarter: 2016Q2

REPORT INFORMATION
  Report Type: Report from Study
  Country: BO (occurrence: BO)
  Receive Date: 20160420
  Receipt Date: 20160420
  Transmission Date: 20160815
  Serious: Yes (Death, Other)
  Sender: FDA-Public Use
  Company Number: PHHY2015BO034157

PATIENT
  Age: 35 Year
  Sex: Male

DRUGS (2)
  1. GLIVEC [Suspect]
     Active Substance: IMATINIB MESYLATE
     Dosage: 600 MG, UNK
     Route: 065
     Dates: start: 20151001
  2. GLIVEC [Suspect]
     Active Substance: IMATINIB MESYLATE
     Indication: CHRONIC MYELOID LEUKAEMIA
     Dosage: 400 MG, UNK
     Route: 065

REACTIONS (6)
  - No therapeutic response [Unknown]
  - Cerebral haemorrhage [Fatal]
  - General physical health deterioration [Unknown]
  - Drug resistance [Unknown]
  - Leukocytosis [Unknown]
  - Platelet count increased [Unknown]

NARRATIVE: CASE EVENT DATE: 20160415
